FAERS Safety Report 16712636 (Version 1)
Quarter: 2019Q3

REPORT INFORMATION
  Report Type: Spontaneous
  Country: CA (occurrence: CA)
  Receive Date: 20190816
  Receipt Date: 20190816
  Transmission Date: 20191004
  Serious: Yes (Hospitalization, Other)
  Sender: FDA-Public Use
  Company Number: PHHY2019CA185929

PATIENT
  Age: 63 Year
  Sex: Female

DRUGS (4)
  1. OCTREOTIDE LAR [Suspect]
     Active Substance: OCTREOTIDE
     Indication: CARCINOID TUMOUR OF THE OVARY
     Dosage: UNK
     Route: 065
     Dates: start: 2011
  2. METFORMIN [Concomitant]
     Active Substance: METFORMIN HYDROCHLORIDE
     Indication: DIABETES MELLITUS
     Dosage: UNK
     Route: 065
  3. EVEROLIMUS. [Suspect]
     Active Substance: EVEROLIMUS
     Indication: CARCINOID TUMOUR OF THE OVARY
     Dosage: 10 MG, QD
     Route: 065
     Dates: start: 201708
  4. OCTREOTIDE LAR [Suspect]
     Active Substance: OCTREOTIDE
     Dosage: 50 MG EVERY MONTH
     Route: 065

REACTIONS (9)
  - Metastases to bone [Unknown]
  - Cholecystitis [Recovered/Resolved]
  - Gallbladder necrosis [Recovered/Resolved]
  - Cholelithiasis [Recovered/Resolved]
  - Metastases to lymph nodes [Unknown]
  - Product use in unapproved indication [Unknown]
  - Bile duct stone [Recovered/Resolved]
  - Haemobilia [Recovered/Resolved]
  - Metastases to muscle [Unknown]

NARRATIVE: CASE EVENT DATE: 201708
